FAERS Safety Report 6797358-5 (Version None)
Quarter: 2010Q2

REPORT INFORMATION
  Report Type: 
  Country: None (occurrence: None)
  Receive Date: 20100622
  Receipt Date: 20100614
  Transmission Date: 20101027
  Serious: Yes (Hospitalization, Other)
  Sender: FDA-Public Use
  Company Number: 2010SP031435

PATIENT
  Age: 29 Year
  Sex: Female
  Weight: 68 kg

DRUGS (3)
  1. PUREEGON (FOLLITROPIN BETA / 01348901/ ) [Suspect]
     Indication: INFERTILITY
     Dosage: 100 IU; QD; 100 IU; QAM
     Dates: start: 20100525, end: 20100527
  2. PUREEGON (FOLLITROPIN BETA / 01348901/ ) [Suspect]
     Indication: INFERTILITY
     Dosage: 100 IU; QD; 100 IU; QAM
     Dates: start: 20100529, end: 20100529
  3. SYNAREL [Concomitant]

REACTIONS (17)
  - ARRHYTHMIA [None]
  - CONVULSION [None]
  - CYANOSIS [None]
  - DEREALISATION [None]
  - DIZZINESS [None]
  - DRUG DOSE OMISSION [None]
  - DYSPNOEA [None]
  - EYE ROLLING [None]
  - FALL [None]
  - FATIGUE [None]
  - HALLUCINATION, VISUAL [None]
  - HYPERVENTILATION [None]
  - INCOHERENT [None]
  - PANIC REACTION [None]
  - RESTLESSNESS [None]
  - TREMOR [None]
  - VISUAL FIELD DEFECT [None]
